FAERS Safety Report 19717358 (Version 1)
Quarter: 2021Q3

REPORT INFORMATION
  Report Type: Other
  Country: DK (occurrence: DK)
  Receive Date: 20210819
  Receipt Date: 20210819
  Transmission Date: 20211014
  Serious: Yes (Death, Hospitalization)
  Sender: FDA-Public Use
  Company Number: DK-APPCO PHARMA LLC-2115313

PATIENT
  Age: 82 Year
  Sex: Male

DRUGS (1)
  1. METRONIDAZOLE. [Suspect]
     Active Substance: METRONIDAZOLE
     Indication: DIARRHOEA
     Route: 048

REACTIONS (2)
  - Drug resistance [Fatal]
  - Drug ineffective [Fatal]
